FAERS Safety Report 8120277-9 (Version None)
Quarter: 2012Q1

REPORT INFORMATION
  Report Type: 
  Country: None (occurrence: None)
  Receive Date: 20120207
  Receipt Date: 20120125
  Transmission Date: 20120608
  Serious: Yes (Other)
  Sender: FDA-Public Use
  Company Number: IT-MYLANLABS-2012S1002034

PATIENT
  Age: 76 Year
  Sex: Female

DRUGS (1)
  1. OXYBUTYNIN [Suspect]
     Indication: URINARY INCONTINENCE
     Route: 048
     Dates: start: 20111230, end: 20111231

REACTIONS (1)
  - ANGIOEDEMA [None]
